FAERS Safety Report 9131969 (Version 1)
Quarter: 2013Q1

REPORT INFORMATION
  Report Type: Spontaneous
  Country: US (occurrence: US)
  Receive Date: 20130301
  Receipt Date: 20130301
  Transmission Date: 20140127
  Serious: Yes (Other)
  Sender: FDA-Public Use
  Company Number: US-BAYER-2013-026404

PATIENT
  Age: 43 Year
  Sex: Female

DRUGS (8)
  1. YAZ [Suspect]
     Dosage: UNK
     Dates: start: 20080624, end: 20080818
  2. YAZ [Suspect]
     Dosage: UNK
     Dates: start: 20081026, end: 20081119
  3. YAZ [Suspect]
     Dosage: UNK
     Dates: start: 20090112
  4. YAZ [Suspect]
     Dosage: UNK
     Dates: start: 20090330, end: 20100403
  5. GIANVI [Suspect]
     Dosage: UNK
     Dates: start: 20100709, end: 20120820
  6. AMOXICILLIN [Concomitant]
     Dosage: 500 MG, UNK
  7. PREVIDENT [Concomitant]
     Dosage: 0.2% SOLUTION
  8. HYDROCODONE W/APAP [Concomitant]
     Dosage: 5-500

REACTIONS (1)
  - Deep vein thrombosis [None]
